FAERS Safety Report 23061435 (Version 1)
Quarter: 2023Q4

REPORT INFORMATION
  Report Type: Spontaneous
  Country: US (occurrence: None)
  Receive Date: 20231013
  Receipt Date: 20231013
  Transmission Date: 20240109
  Serious: Yes (Hospitalization)
  Sender: FDA-Public Use
  Company Number: 2023A228129

PATIENT
  Age: 81 Year
  Sex: Female

DRUGS (2)
  1. CEDIRANIB [Suspect]
     Active Substance: CEDIRANIB
     Dosage: 20.0MG UNKNOWN
     Route: 048
  2. DURVALUMAB [Suspect]
     Active Substance: DURVALUMAB
     Route: 042

REACTIONS (2)
  - Myopericarditis [Recovering/Resolving]
  - Drug-induced liver injury [Recovering/Resolving]
